FAERS Safety Report 6547196-3 (Version None)
Quarter: 2010Q1

REPORT INFORMATION
  Report Type: 
  Country: None (occurrence: None)
  Receive Date: 20100122
  Receipt Date: 20100118
  Transmission Date: 20100710
  Serious: Yes (Other)
  Sender: FDA-Public Use
  Company Number: CA-JNJCH-2010000376

PATIENT
  Sex: Male
  Weight: 104.3 kg

DRUGS (1)
  1. ROGAINE [Suspect]
     Indication: ALOPECIA
     Dosage: TEXT:MORE THAN 1ML TWICE DAILY
     Route: 061
     Dates: start: 20091212, end: 20091230

REACTIONS (3)
  - HEART RATE INCREASED [None]
  - INCORRECT DOSE ADMINISTERED [None]
  - TRICUSPID VALVE INCOMPETENCE [None]
